FAERS Safety Report 5486332-7 (Version None)
Quarter: 2007Q4

REPORT INFORMATION
  Report Type: 
  Country: None (occurrence: None)
  Receive Date: 20071016
  Receipt Date: 20071003
  Transmission Date: 20080405
  Serious: Yes (Other)
  Sender: FDA-Public Use
  Company Number: US-BRACCO-BDI-010317

PATIENT

DRUGS (4)
  1. MULTIHANCE [Suspect]
     Route: 050
  2. MAGNEVIST [Suspect]
     Route: 050
  3. MAGNEVIST [Suspect]
     Route: 050
  4. MAGNEVIST [Concomitant]
     Route: 065

REACTIONS (1)
  - NEPHROGENIC SYSTEMIC FIBROSIS [None]
